FAERS Safety Report 5990227-X (Version None)
Quarter: 2008Q4

REPORT INFORMATION
  Report Type: 
  Country: None (occurrence: None)
  Receive Date: 20081211
  Receipt Date: 20081201
  Transmission Date: 20090506
  Serious: Yes (Other)
  Sender: FDA-Public Use
  Company Number: FR-AMGEN-UK321242

PATIENT

DRUGS (1)
  1. ROMIPLOSTIM [Suspect]
     Indication: DRUG USE FOR UNKNOWN INDICATION
     Route: 058
     Dates: end: 20081112

REACTIONS (1)
  - THERAPEUTIC RESPONSE DECREASED [None]
